FAERS Safety Report 22041490 (Version 1)
Quarter: 2023Q1

REPORT INFORMATION
  Report Type: Spontaneous
  Country: US (occurrence: None)
  Receive Date: 20230224
  Receipt Date: 20230224
  Transmission Date: 20230417
  Serious: No
  Sender: FDA-Public Use
  Company Number: None

PATIENT
  Age: 56 Year
  Sex: Female
  Weight: 63.5 kg

DRUGS (16)
  1. PACLITAXEL [Suspect]
     Active Substance: PACLITAXEL
     Indication: Breast cancer female
     Dosage: FREQUENCY : WEEKLY;?
     Route: 042
  2. KEYTRUDA [Suspect]
     Active Substance: PEMBROLIZUMAB
     Indication: Breast cancer female
     Route: 042
  3. FAMOTIDINE [Suspect]
     Active Substance: FAMOTIDINE
     Dosage: FREQUENCY : WEEKLY;?
     Route: 042
  4. DEXAMETHASONE [Suspect]
     Active Substance: DEXAMETHASONE
     Dosage: FREQUENCY : EVERY OTHER WEEK;?
     Route: 042
  5. PALONOSETRON [Suspect]
     Active Substance: PALONOSETRON
     Dosage: FREQUENCY : EVERY OTHER WEEK;?
  6. AMLODIPINE BESYLATE [Concomitant]
     Active Substance: AMLODIPINE BESYLATE
  7. BACLOFEN [Concomitant]
     Active Substance: BACLOFEN
  8. CLONIDINE [Concomitant]
     Active Substance: CLONIDINE
  9. CYCLOPHOSPHAMIDE [Concomitant]
     Active Substance: CYCLOPHOSPHAMIDE
  10. FENOFIBRATE [Concomitant]
     Active Substance: FENOFIBRATE
  11. HYDROCHLOROTHIAZIDE [Concomitant]
     Active Substance: HYDROCHLOROTHIAZIDE
  12. LEVOTHYROXINE [Concomitant]
     Active Substance: LEVOTHYROXINE
  13. LOSARTAN POTASSIUM [Concomitant]
     Active Substance: LOSARTAN POTASSIUM
  14. Procvhlorperazine [Concomitant]
  15. SIMVASTATIN [Concomitant]
     Active Substance: SIMVASTATIN
  16. FAMOTIDINE [Suspect]
     Active Substance: FAMOTIDINE
     Route: 042

REACTIONS (1)
  - Hospice care [None]
